FAERS Safety Report 14111351 (Version 4)
Quarter: 2017Q4

REPORT INFORMATION
  Report Type: Report from Study
  Country: US (occurrence: US)
  Receive Date: 20171020
  Receipt Date: 20171120
  Transmission Date: 20180321
  Serious: Yes (Hospitalization)
  Sender: FDA-Public Use
  Company Number: US-PFIZER INC-2017441802

PATIENT
  Age: 48 Year
  Sex: Female
  Weight: 60.8 kg

DRUGS (3)
  1. PALBOCICLIB [Suspect]
     Active Substance: PALBOCICLIB
     Dosage: 125 MG, DAILY ON DAYS 1-21 FOLLOWED BY 7 DAYS OFF (28 DAY CYCLE)
     Route: 048
     Dates: start: 20170927, end: 20171002
  2. PALBOCICLIB [Suspect]
     Active Substance: PALBOCICLIB
     Indication: BREAST CANCER
     Dosage: 125 MG, DAILY ON DAYS 1-21 FOLLOWED BY 7 DAYS OFF (28 DAY CYCLE)
     Route: 048
     Dates: start: 20170816
  3. TAMOXIFEN [Concomitant]
     Active Substance: TAMOXIFEN
     Indication: BREAST CANCER
     Dosage: 20 MG, DAILY
     Route: 048
     Dates: start: 20170726

REACTIONS (1)
  - Anxiety [Recovered/Resolved]

NARRATIVE: CASE EVENT DATE: 20171007
